FAERS Safety Report 16398336 (Version 2)
Quarter: 2021Q1

REPORT INFORMATION
  Report Type: Report from Study
  Country: AU (occurrence: AU)
  Receive Date: 20190606
  Receipt Date: 20210305
  Transmission Date: 20210419
  Serious: Yes (Hospitalization, Other)
  Sender: FDA-Public Use
  Company Number: AU-ASTRAZENECA-2019SE02164

PATIENT
  Age: 19865 Day
  Sex: Male

DRUGS (42)
  1. BCG [Suspect]
     Active Substance: BCG VACCINE
     Indication: BLADDER CANCER
     Dosage: 1.00 VIAL
     Route: 043
     Dates: start: 20181115, end: 20181115
  2. BCG [Suspect]
     Active Substance: BCG VACCINE
     Indication: BLADDER CANCER
     Dosage: 1.00 VIAL
     Route: 043
     Dates: start: 20200709, end: 20200709
  3. BCG [Suspect]
     Active Substance: BCG VACCINE
     Indication: BLADDER CANCER
     Dosage: 1.00 VIAL
     Route: 043
     Dates: start: 20201210, end: 20201210
  4. BCG [Suspect]
     Active Substance: BCG VACCINE
     Indication: BLADDER CANCER
     Dosage: 1.00 VIAL
     Route: 043
     Dates: start: 20201224, end: 20201224
  5. PARACETOMOL [Concomitant]
     Active Substance: ACETAMINOPHEN
     Indication: PYREXIA
     Dosage: 2.0DF INTERMITTENT
     Route: 048
     Dates: start: 20181122, end: 20181122
  6. PARACETOMOL [Concomitant]
     Active Substance: ACETAMINOPHEN
     Indication: PYREXIA
     Dosage: 2.0DF INTERMITTENT
     Route: 048
     Dates: start: 20181115, end: 20181219
  7. BCG [Suspect]
     Active Substance: BCG VACCINE
     Indication: BLADDER CANCER
     Dosage: 1.00 VIAL
     Route: 043
     Dates: start: 20200123, end: 20200123
  8. SIMBRINZA [Concomitant]
     Active Substance: BRIMONIDINE TARTRATE\BRINZOLAMIDE
     Indication: GLAUCOMA
     Route: 047
     Dates: start: 201701
  9. VITAMIN D3 [Concomitant]
     Active Substance: CHOLECALCIFEROL
     Indication: SUPPLEMENTATION THERAPY
     Route: 048
     Dates: start: 2012, end: 201812
  10. DURVALUMAB. [Suspect]
     Active Substance: DURVALUMAB
     Indication: BLADDER CANCER
     Route: 042
     Dates: start: 20181101, end: 20181101
  11. DURVALUMAB. [Suspect]
     Active Substance: DURVALUMAB
     Indication: BLADDER CANCER
     Route: 042
     Dates: start: 20181129, end: 20181129
  12. BCG [Suspect]
     Active Substance: BCG VACCINE
     Indication: BLADDER CANCER
     Dosage: 1.00 VIAL
     Route: 043
     Dates: start: 20200716, end: 20200716
  13. ATACAND [Concomitant]
     Active Substance: CANDESARTAN CILEXETIL
     Indication: HYPERTENSION
     Route: 048
     Dates: start: 2008, end: 20181015
  14. GENTAMYCIN [Concomitant]
     Active Substance: GENTAMICIN
     Indication: ENTEROCOLITIS
     Dosage: 400.0MG ONCE/SINGLE ADMINISTRATION
     Route: 042
     Dates: start: 20181219, end: 20181219
  15. AMOXICILLIN. [Concomitant]
     Active Substance: AMOXICILLIN
     Indication: URINARY TRACT INFECTION
     Route: 048
     Dates: start: 20181219, end: 20181225
  16. BCG [Suspect]
     Active Substance: BCG VACCINE
     Indication: BLADDER CANCER
     Dosage: 1.00 VIAL
     Route: 043
     Dates: start: 20181122, end: 20181122
  17. BCG [Suspect]
     Active Substance: BCG VACCINE
     Indication: BLADDER CANCER
     Dosage: 1.00 VIAL
     Route: 043
     Dates: start: 20190502, end: 20190502
  18. BCG [Suspect]
     Active Substance: BCG VACCINE
     Indication: BLADDER CANCER
     Dosage: 1.00 VIAL
     Route: 043
     Dates: start: 20190808, end: 20190808
  19. GENTAMYCIN [Concomitant]
     Active Substance: GENTAMICIN
     Indication: URINARY TRACT INFECTION
     Dosage: 400.0MG ONCE/SINGLE ADMINISTRATION
     Route: 042
     Dates: start: 20181219, end: 20181219
  20. DIABEX [Concomitant]
     Active Substance: METFORMIN HYDROCHLORIDE
     Indication: TYPE 2 DIABETES MELLITUS
     Route: 048
     Dates: start: 2003
  21. FISH OIL [Concomitant]
     Active Substance: FISH OIL
     Indication: SUPPLEMENTATION THERAPY
     Route: 048
     Dates: start: 2012, end: 201812
  22. PARACETOMOL [Concomitant]
     Active Substance: ACETAMINOPHEN
     Indication: BACK PAIN
     Dosage: 2.0DF INTERMITTENT
     Route: 048
     Dates: start: 20181115, end: 20181219
  23. ENDONE [Concomitant]
     Active Substance: OXYCODONE HYDROCHLORIDE
     Indication: ABDOMINAL PAIN
     Dosage: 5.0MG INTERMITTENT
     Route: 048
     Dates: start: 20181228, end: 20190115
  24. BCG [Suspect]
     Active Substance: BCG VACCINE
     Indication: BLADDER CANCER
     Dosage: 1.00 VIAL
     Route: 043
     Dates: start: 20181101, end: 20181101
  25. BCG [Suspect]
     Active Substance: BCG VACCINE
     Indication: BLADDER CANCER
     Dosage: 1.00 VIAL
     Route: 043
     Dates: start: 20181129, end: 20181129
  26. BCG [Suspect]
     Active Substance: BCG VACCINE
     Indication: BLADDER CANCER
     Dosage: 1.00 VIAL
     Route: 043
     Dates: start: 20181206, end: 20181206
  27. PARACETOMOL [Concomitant]
     Active Substance: ACETAMINOPHEN
     Indication: BACK PAIN
     Dosage: 2.0DF INTERMITTENT
     Route: 048
     Dates: start: 20181122, end: 20181122
  28. BCG [Suspect]
     Active Substance: BCG VACCINE
     Indication: BLADDER CANCER
     Dosage: 1.00 VIAL
     Route: 043
     Dates: start: 20181108, end: 20181108
  29. BCG [Suspect]
     Active Substance: BCG VACCINE
     Indication: BLADDER CANCER
     Dosage: 1.00 VIAL
     Route: 043
     Dates: start: 20190509, end: 20190509
  30. BCG [Suspect]
     Active Substance: BCG VACCINE
     Indication: BLADDER CANCER
     Dosage: 1.00 VIAL
     Route: 043
     Dates: start: 20190725, end: 20190725
  31. BCG [Suspect]
     Active Substance: BCG VACCINE
     Indication: BLADDER CANCER
     Dosage: 1.00 VIAL
     Route: 043
     Dates: start: 20190801, end: 20190801
  32. BCG [Suspect]
     Active Substance: BCG VACCINE
     Indication: BLADDER CANCER
     Dosage: 1.00 VIAL
     Route: 043
     Dates: start: 20200116, end: 20200116
  33. BCG [Suspect]
     Active Substance: BCG VACCINE
     Indication: BLADDER CANCER
     Dosage: 1.00 VIAL
     Route: 043
     Dates: start: 20201217, end: 20201217
  34. GANFORT PF 0.3/5 EYE DROPS [Concomitant]
     Indication: GLAUCOMA
     Route: 047
     Dates: start: 201701
  35. GLUCOSAMINE [Concomitant]
     Active Substance: GLUCOSAMINE
     Indication: OSTEOARTHRITIS
     Route: 048
     Dates: start: 2012, end: 201812
  36. SOMAC [Concomitant]
     Active Substance: PANTOPRAZOLE SODIUM
     Indication: ABDOMINAL PAIN
     Dosage: 1.0DF INTERMITTENT
     Route: 048
     Dates: start: 20181228
  37. BCG [Suspect]
     Active Substance: BCG VACCINE
     Indication: BLADDER CANCER
     Dosage: 1.00 VIAL
     Route: 043
     Dates: start: 20190516, end: 20190516
  38. BCG [Suspect]
     Active Substance: BCG VACCINE
     Indication: BLADDER CANCER
     Dosage: 1.00 VIAL
     Route: 043
     Dates: start: 20200109, end: 20200109
  39. BCG [Suspect]
     Active Substance: BCG VACCINE
     Indication: BLADDER CANCER
     Dosage: 1.00 VIAL
     Route: 043
     Dates: start: 20200702, end: 20200702
  40. GLUCOSAMINE [Concomitant]
     Active Substance: GLUCOSAMINE
     Indication: OSTEOARTHRITIS
     Route: 048
     Dates: start: 2012, end: 201812
  41. URAL (CITRIC ACID+ SODIUM BICARBONATE + SODIUM CITRATE + TARTARIC A... [Concomitant]
     Indication: DYSURIA
     Dosage: 1.0DF INTERMITTENT
     Route: 048
     Dates: start: 20181122, end: 20181219
  42. OXYBUTYNON [Concomitant]
     Indication: DYSURIA
     Dosage: 5.0MG ONCE/SINGLE ADMINISTRATION
     Route: 048
     Dates: start: 20181219, end: 20181219

REACTIONS (1)
  - Immune-mediated enterocolitis [Recovered/Resolved]

NARRATIVE: CASE EVENT DATE: 20181228
